FAERS Safety Report 22074149 (Version 2)
Quarter: 2023Q2

REPORT INFORMATION
  Report Type: Spontaneous
  Country: JP (occurrence: JP)
  Receive Date: 20230308
  Receipt Date: 20230407
  Transmission Date: 20230721
  Serious: Yes (Hospitalization, Other)
  Sender: FDA-Public Use
  Company Number: None

PATIENT
  Age: 47 Year
  Sex: Male
  Weight: 74.3 kg

DRUGS (37)
  1. PREDNISOLONE [Suspect]
     Active Substance: PREDNISOLONE
     Indication: Dermatitis atopic
     Dosage: 0.5%
     Route: 061
     Dates: start: 20190419, end: 20190425
  2. PREDNISOLONE [Suspect]
     Active Substance: PREDNISOLONE
     Dosage: 0.5%
     Route: 061
     Dates: start: 20190201, end: 20190207
  3. PREDNISOLONE [Suspect]
     Active Substance: PREDNISOLONE
     Dosage: 0.5%
     Route: 061
     Dates: start: 20190604, end: 20190610
  4. PREDNISOLONE [Suspect]
     Active Substance: PREDNISOLONE
     Dosage: 0.5%
     Route: 061
     Dates: start: 20190801, end: 20190807
  5. PREDNISOLONE [Suspect]
     Active Substance: PREDNISOLONE
     Dosage: 0.5%
     Route: 061
     Dates: start: 20191120, end: 20191126
  6. PREDNISOLONE [Suspect]
     Active Substance: PREDNISOLONE
     Dosage: 0.5%
     Route: 061
     Dates: start: 20191205, end: 20191211
  7. PREDNISOLONE [Suspect]
     Active Substance: PREDNISOLONE
     Dosage: 0.5%
     Route: 061
     Dates: start: 20191216, end: 20191220
  8. PREDNISOLONE [Suspect]
     Active Substance: PREDNISOLONE
     Dosage: 0.5%
     Route: 061
     Dates: start: 20191230, end: 20200103
  9. UPADACITINIB [Suspect]
     Active Substance: UPADACITINIB
     Indication: Dermatitis atopic
     Route: 048
     Dates: start: 20190125, end: 20190520
  10. UPADACITINIB [Suspect]
     Active Substance: UPADACITINIB
     Route: 048
     Dates: start: 20190521, end: 20211217
  11. UPADACITINIB [Suspect]
     Active Substance: UPADACITINIB
     Route: 048
     Dates: start: 20211230
  12. FLUOCINOLONE ACETONIDE [Suspect]
     Active Substance: FLUOCINOLONE ACETONIDE
     Indication: Dermatitis atopic
     Route: 061
     Dates: start: 20190125, end: 20190131
  13. FLUOCINOLONE ACETONIDE [Suspect]
     Active Substance: FLUOCINOLONE ACETONIDE
     Route: 061
     Dates: start: 20190329, end: 20190418
  14. FLUOCINOLONE ACETONIDE [Suspect]
     Active Substance: FLUOCINOLONE ACETONIDE
     Route: 061
     Dates: start: 20190514, end: 20190603
  15. FLUOCINOLONE ACETONIDE [Suspect]
     Active Substance: FLUOCINOLONE ACETONIDE
     Route: 061
     Dates: start: 20190711, end: 20190731
  16. FLUOCINOLONE ACETONIDE [Suspect]
     Active Substance: FLUOCINOLONE ACETONIDE
     Route: 061
     Dates: start: 20191030, end: 20191119
  17. FLUOCINOLONE ACETONIDE [Suspect]
     Active Substance: FLUOCINOLONE ACETONIDE
     Route: 061
     Dates: start: 20191127, end: 20191204
  18. FLUOCINOLONE ACETONIDE [Suspect]
     Active Substance: FLUOCINOLONE ACETONIDE
     Route: 061
     Dates: start: 20191212, end: 20191215
  19. FLUOCINOLONE ACETONIDE [Suspect]
     Active Substance: FLUOCINOLONE ACETONIDE
     Route: 061
     Dates: start: 20191221, end: 20191229
  20. FLUOCINOLONE ACETONIDE [Suspect]
     Active Substance: FLUOCINOLONE ACETONIDE
     Route: 061
     Dates: start: 20200104, end: 20200121
  21. CLOBETASOL PROPIONATE [Suspect]
     Active Substance: CLOBETASOL PROPIONATE
     Indication: Dermatitis atopic
     Dosage: 0.05%
     Route: 061
     Dates: start: 20191021, end: 20191107
  22. FLUOCINONIDE [Suspect]
     Active Substance: FLUOCINONIDE
     Indication: Dermatitis atopic
     Dosage: 0.05%
     Route: 061
     Dates: start: 20191021, end: 20191029
  23. PETROLATUM [Concomitant]
     Active Substance: PETROLATUM
     Indication: Dry skin prophylaxis
     Dates: start: 20190118
  24. COSOPT [Concomitant]
     Active Substance: DORZOLAMIDE HYDROCHLORIDE\TIMOLOL MALEATE
     Indication: Prophylaxis
     Dates: start: 20181219, end: 20181220
  25. COSOPT [Concomitant]
     Active Substance: DORZOLAMIDE HYDROCHLORIDE\TIMOLOL MALEATE
     Dates: start: 20190409, end: 20190513
  26. COSOPT [Concomitant]
     Active Substance: DORZOLAMIDE HYDROCHLORIDE\TIMOLOL MALEATE
     Dates: start: 20191028, end: 20191028
  27. COSOPT [Concomitant]
     Active Substance: DORZOLAMIDE HYDROCHLORIDE\TIMOLOL MALEATE
     Dates: start: 20200512, end: 20211224
  28. BETAMETHASONE DIPROPIONATE [Concomitant]
     Active Substance: BETAMETHASONE DIPROPIONATE
     Indication: Dermatitis atopic
     Dates: start: 20181210, end: 20190117
  29. BETAMETHASONE DIPROPIONATE [Concomitant]
     Active Substance: BETAMETHASONE DIPROPIONATE
     Dates: start: 20120508, end: 20160426
  30. BETAMETHASONE DIPROPIONATE [Concomitant]
     Active Substance: BETAMETHASONE DIPROPIONATE
     Dates: start: 20040527, end: 20051115
  31. BETAMETHASONE DIPROPIONATE [Concomitant]
     Active Substance: BETAMETHASONE DIPROPIONATE
     Dates: start: 20200414
  32. TAPROS [LEUPRORELIN ACETATE] [Concomitant]
     Indication: Prophylaxis
     Dates: start: 20201101, end: 20211223
  33. LOCOID [Concomitant]
     Active Substance: HYDROCORTISONE BUTYRATE
     Indication: Dermatitis atopic
     Dates: start: 20130307, end: 20190117
  34. LOCOID [Concomitant]
     Active Substance: HYDROCORTISONE BUTYRATE
     Dates: start: 20120910, end: 20130729
  35. LOCOID [Concomitant]
     Active Substance: HYDROCORTISONE BUTYRATE
     Dates: start: 20080313, end: 20111114
  36. LOCOID [Concomitant]
     Active Substance: HYDROCORTISONE BUTYRATE
     Dates: start: 20051116, end: 20051207
  37. LOCOID [Concomitant]
     Active Substance: HYDROCORTISONE BUTYRATE
     Dates: start: 20200121

REACTIONS (1)
  - Glaucoma [Not Recovered/Not Resolved]
